FAERS Safety Report 5925713-1 (Version None)
Quarter: 2008Q3

REPORT INFORMATION
  Report Type: 
  Country: None (occurrence: None)
  Receive Date: 20080919
  Receipt Date: 20080603
  Transmission Date: 20090109
  Serious: Yes (Other)
  Sender: FDA-Public Use
  Company Number: US-WYE-H04368008

PATIENT
  Age: 58 Year
  Sex: Female
  Weight: 72.64 kg

DRUGS (6)
  1. PRISTIQ [Suspect]
     Indication: DEPRESSION
     Dosage: ^CUT OFF ABOUT 1/4 OF THE TABLET^, ORAL : 50 MG 1X PER 1 DAY, ORAL
     Route: 048
     Dates: start: 20080501, end: 20080501
  2. PRISTIQ [Suspect]
     Indication: DEPRESSION
     Dosage: ^CUT OFF ABOUT 1/4 OF THE TABLET^, ORAL : 50 MG 1X PER 1 DAY, ORAL
     Route: 048
     Dates: start: 20080501
  3. AMBIEN [Concomitant]
  4. SAM-E (S-ADENOSYLMETHIONINE) [Concomitant]
  5. LOVAZA [Concomitant]
  6. DIAZEPAM [Concomitant]

REACTIONS (2)
  - FLUSHING [None]
  - TREMOR [None]
